FAERS Safety Report 7338431-2 (Version None)
Quarter: 2011Q1

REPORT INFORMATION
  Report Type: 
  Country: None (occurrence: None)
  Receive Date: 20110308
  Receipt Date: 20110225
  Transmission Date: 20110831
  Serious: Yes (Hospitalization)
  Sender: FDA-Public Use
  Company Number: AT-JNJFOC-20090608168

PATIENT
  Sex: Female
  Weight: 87 kg

DRUGS (56)
  1. GOLIMUMAB [Suspect]
     Route: 058
  2. GOLIMUMAB [Suspect]
     Route: 058
  3. PLACEBO [Suspect]
     Indication: RHEUMATOID ARTHRITIS
     Route: 058
  4. PLACEBO [Suspect]
     Route: 058
  5. PROTAGENT [Concomitant]
     Route: 047
  6. THYREX [Concomitant]
     Route: 048
  7. FLUOXETINE HCL [Concomitant]
     Route: 048
  8. GOLIMUMAB [Suspect]
     Route: 058
  9. PLACEBO [Suspect]
     Route: 058
  10. PLACEBO [Suspect]
     Route: 058
  11. PLACEBO [Suspect]
     Route: 058
  12. PLACEBO [Suspect]
     Route: 058
  13. PLACEBO [Suspect]
     Route: 058
  14. METHOTREXATE [Suspect]
     Route: 048
  15. METHOTREXATE [Suspect]
     Route: 048
  16. SOY ISOFLAVONES [Concomitant]
     Route: 048
  17. FOLSAN [Concomitant]
     Route: 048
  18. GOLIMUMAB [Suspect]
     Route: 058
  19. PLACEBO [Suspect]
     Route: 058
  20. METHOTREXATE [Suspect]
     Route: 048
  21. BIOFLORIN [Concomitant]
     Route: 047
  22. SELOKEN RETARD PLUS [Concomitant]
     Route: 048
  23. GOLIMUMAB [Suspect]
     Route: 058
  24. PLACEBO [Suspect]
     Route: 058
  25. PLACEBO [Suspect]
     Route: 058
  26. PLACEBO [Suspect]
     Route: 058
  27. METHOTREXATE [Suspect]
     Indication: RHEUMATOID ARTHRITIS
     Route: 048
  28. METHOTREXATE [Suspect]
     Route: 048
  29. METHOTREXATE [Suspect]
     Route: 048
  30. URBASON [Concomitant]
     Route: 048
  31. GOLIMUMAB [Suspect]
     Route: 058
  32. GOLIMUMAB [Suspect]
     Route: 058
  33. PLACEBO [Suspect]
     Route: 058
  34. METHOTREXATE [Suspect]
     Route: 048
  35. METHOTREXATE [Concomitant]
     Route: 048
  36. ZOLPIDEM TARTRATE [Concomitant]
     Route: 048
  37. GOLIMUMAB [Suspect]
     Route: 058
  38. GOLIMUMAB [Suspect]
     Route: 058
  39. GOLIMUMAB [Suspect]
     Route: 058
  40. GOLIMUMAB [Suspect]
     Route: 058
  41. GOLIMUMAB [Suspect]
     Route: 058
  42. ISONIAZID [Concomitant]
     Route: 048
  43. XEFO [Concomitant]
     Route: 048
  44. GOLIMUMAB [Suspect]
     Indication: RHEUMATOID ARTHRITIS
     Route: 058
  45. GOLIMUMAB [Suspect]
     Route: 058
  46. GOLIMUMAB [Suspect]
     Route: 058
  47. PLACEBO [Suspect]
     Route: 058
  48. METHOTREXATE [Suspect]
     Route: 048
  49. METHOTREXATE [Suspect]
     Route: 048
  50. PANTOLOC [Concomitant]
     Route: 048
  51. GOLIMUMAB [Suspect]
     Route: 058
  52. GOLIMUMAB [Suspect]
     Route: 058
  53. GOLIMUMAB [Suspect]
     Route: 058
  54. GOLIMUMAB [Suspect]
     Route: 058
  55. GOLIMUMAB [Suspect]
     Route: 058
  56. CAL-D-VITA [Concomitant]
     Route: 048

REACTIONS (7)
  - C-REACTIVE PROTEIN INCREASED [None]
  - HAEMATOCRIT INCREASED [None]
  - BLOOD PRESSURE INCREASED [None]
  - TREATMENT NONCOMPLIANCE [None]
  - GASTROINTESTINAL MUCOSAL DISORDER [None]
  - QRS AXIS ABNORMAL [None]
  - HAEMATOCHEZIA [None]
